FAERS Safety Report 9626130 (Version 1)
Quarter: 2013Q4

REPORT INFORMATION
  Report Type: Spontaneous
  Country: US (occurrence: US)
  Receive Date: 20131016
  Receipt Date: 20131016
  Transmission Date: 20140711
  Serious: Yes (Other)
  Sender: FDA-Public Use
  Company Number: US-RB-058712-13

PATIENT
  Age: 69 Year
  Sex: Male

DRUGS (2)
  1. MUCINEX [Suspect]
     Indication: PRODUCT USED FOR UNKNOWN INDICATION
     Route: 048
     Dates: start: 20131003
  2. ZYTIGA [Concomitant]
     Indication: NEOPLASM MALIGNANT
     Dosage: 2 TABLETS A DAY

REACTIONS (1)
  - Blood urine present [Not Recovered/Not Resolved]
